FAERS Safety Report 16191298 (Version 4)
Quarter: 2019Q3

REPORT INFORMATION
  Report Type: Spontaneous
  Country: JP (occurrence: JP)
  Receive Date: 20190412
  Receipt Date: 20190709
  Transmission Date: 20191004
  Serious: Yes (Death, Life-Threatening, Hospitalization, Other)
  Sender: FDA-Public Use
  Company Number: JP-BRISTOL-MYERS SQUIBB COMPANY-BMS-2019-010302

PATIENT
  Age: 65 Year
  Sex: Male
  Weight: 58.3 kg

DRUGS (3)
  1. WARFARIN POTASSIUM [Suspect]
     Active Substance: WARFARIN POTASSIUM
     Indication: MESENTERIC VEIN THROMBOSIS
     Dosage: 1.25 MILLIGRAM, QD
     Route: 048
     Dates: start: 20180601, end: 20190109
  2. OPDIVO [Suspect]
     Active Substance: NIVOLUMAB
     Indication: GASTRIC CANCER
     Dosage: 240 MILLIGRAM, QD
     Route: 041
     Dates: start: 20190104
  3. PRIMPERAN [Concomitant]
     Active Substance: METOCLOPRAMIDE HYDROCHLORIDE
     Indication: NAUSEA
     Dosage: 5 MILLIGRAM, QD
     Route: 048
     Dates: start: 20161029, end: 20190109

REACTIONS (2)
  - Interstitial lung disease [Fatal]
  - Pulmonary alveolar haemorrhage [Recovering/Resolving]

NARRATIVE: CASE EVENT DATE: 20190108
